FAERS Safety Report 5656866-0 (Version None)
Quarter: 2008Q1

REPORT INFORMATION
  Report Type: 
  Country: None (occurrence: None)
  Receive Date: 20080306
  Receipt Date: 20080306
  Transmission Date: 20080703
  Serious: Yes (Hospitalization)
  Sender: FDA-Public Use
  Company Number: None

PATIENT
  Age: 60 Year
  Sex: Male
  Weight: 91.63 kg

DRUGS (1)
  1. EZETIMIBE [Suspect]
     Dosage: 10MG EVERY DAY PO
     Route: 048
     Dates: start: 20041130, end: 20070108

REACTIONS (5)
  - BLOOD CREATINE PHOSPHOKINASE INCREASED [None]
  - CHEST DISCOMFORT [None]
  - HEPATIC ENZYME INCREASED [None]
  - OVERDOSE [None]
  - SEBORRHOEIC DERMATITIS [None]
